FAERS Safety Report 5964720-X (Version None)
Quarter: 2008Q4

REPORT INFORMATION
  Report Type: 
  Country: None (occurrence: None)
  Receive Date: 20081124
  Receipt Date: 20081124
  Transmission Date: 20090506
  Serious: Yes (Hospitalization)
  Sender: FDA-Public Use
  Company Number: None

PATIENT
  Age: 66 Year
  Sex: Male
  Weight: 112.4921 kg

DRUGS (1)
  1. METHOTREXATE [Suspect]
     Indication: POLYMYOSITIS
     Dosage: 10MG WEEKLY PO
     Route: 048

REACTIONS (1)
  - PYREXIA [None]
